FAERS Safety Report 14919776 (Version 1)
Quarter: 2018Q2

REPORT INFORMATION
  Report Type: Spontaneous
  Country: US (occurrence: US)
  Receive Date: 20180502
  Receipt Date: 20180502
  Transmission Date: 20180711
  Serious: Yes (Other)
  Sender: FDA-Public Use
  Company Number: None

PATIENT
  Age: 56 Year
  Sex: Male
  Weight: 89.81 kg

DRUGS (5)
  1. HIGH BLOOD PRESSURE MEDICATION. [Concomitant]
  2. HERBAL NOS [Concomitant]
     Active Substance: HERBALS
  3. DIABETES MEDICATION [Concomitant]
     Active Substance: UNSPECIFIED INGREDIENT
  4. VITAMINS [Concomitant]
     Active Substance: VITAMINS
  5. LINZESS [Suspect]
     Active Substance: LINACLOTIDE
     Indication: CONSTIPATION
     Route: 048

REACTIONS (6)
  - Flatulence [None]
  - Dyspnoea [None]
  - Suffocation feeling [None]
  - Drug ineffective [None]
  - Oesophageal discomfort [None]
  - Therapy change [None]
